FAERS Safety Report 9585779 (Version 1)
Quarter: 2013Q4

REPORT INFORMATION
  Report Type: Spontaneous
  Country: JP (occurrence: JP)
  Receive Date: 20131003
  Receipt Date: 20131003
  Transmission Date: 20140711
  Serious: Yes (Other)
  Sender: FDA-Public Use
  Company Number: JP-BRISTOL-MYERS SQUIBB COMPANY-19491604

PATIENT
  Sex: 0

DRUGS (1)
  1. ERBITUX SOLN FOR INF 5MG/ML [Suspect]
     Route: 041

REACTIONS (1)
  - Thrombosis [Unknown]
